FAERS Safety Report 7767784-6 (Version None)
Quarter: 2011Q3

REPORT INFORMATION
  Report Type: 
  Country: None (occurrence: None)
  Receive Date: 20110922
  Receipt Date: 20110606
  Transmission Date: 20111222
  Serious: No
  Sender: FDA-Public Use
  Company Number: US-ASTRAZENECA-2011SE34813

PATIENT
  Age: 49 Year
  Sex: Male

DRUGS (8)
  1. VERAPAMIL [Concomitant]
     Indication: HYPERTENSION
  2. OTC IRON SUPPLEMENT [Concomitant]
  3. SEROQUEL XR [Suspect]
     Indication: BIPOLAR DISORDER
     Route: 048
     Dates: start: 20110201
  4. SEROQUEL XR [Suspect]
     Indication: SLEEP DISORDER
     Route: 048
     Dates: start: 20110201
  5. POTASSIUM [Concomitant]
  6. SEROQUEL XR [Suspect]
     Indication: SCHIZOPHRENIA
     Route: 048
     Dates: start: 20110201
  7. LISINOPRIL [Concomitant]
     Indication: HYPERTENSION
  8. PRILOSEC [Concomitant]
     Indication: GASTROOESOPHAGEAL REFLUX DISEASE

REACTIONS (4)
  - DRUG DOSE OMISSION [None]
  - RESTLESSNESS [None]
  - INSOMNIA [None]
  - OFF LABEL USE [None]
